FAERS Safety Report 11051671 (Version 1)
Quarter: 2015Q2

REPORT INFORMATION
  Report Type: Report from Study
  Country: TN (occurrence: TN)
  Receive Date: 20150421
  Receipt Date: 20150421
  Transmission Date: 20150821
  Serious: Yes (Death)
  Sender: FDA-Public Use
  Company Number: TN-SA-2015SA049098

PATIENT
  Age: 72 Year
  Sex: Male

DRUGS (7)
  1. PLAVIX [Suspect]
     Active Substance: CLOPIDOGREL BISULFATE
     Indication: ACUTE CORONARY SYNDROME
     Route: 048
     Dates: start: 20140412, end: 201501
  2. ATORVASTATIN [Concomitant]
     Active Substance: ATORVASTATIN
  3. ASPEGIC [Concomitant]
     Active Substance: ASPIRIN DL-LYSINE
     Route: 048
  4. CORVASAL [Concomitant]
     Active Substance: LINSIDOMINE
     Route: 048
  5. INSULIN [Concomitant]
     Active Substance: INSULIN NOS
  6. MONICOR [Concomitant]
     Active Substance: ISOSORBIDE MONONITRATE
     Route: 048
  7. CINCOR [Concomitant]
     Route: 048

REACTIONS (4)
  - Gallbladder perforation [Fatal]
  - Fatigue [Unknown]
  - General physical health deterioration [Unknown]
  - Decreased appetite [Unknown]

NARRATIVE: CASE EVENT DATE: 201501
